FAERS Safety Report 6640184-8 (Version None)
Quarter: 2010Q1

REPORT INFORMATION
  Report Type: 
  Country: None (occurrence: None)
  Receive Date: 20100315
  Receipt Date: 20100303
  Transmission Date: 20100710
  Serious: Yes (Hospitalization)
  Sender: FDA-Public Use
  Company Number: 2010DEU000866

PATIENT
  Age: 32 Year
  Sex: Male

DRUGS (3)
  1. PROGRAF [Suspect]
     Indication: RENAL TRANSPLANT
     Dosage: 1.5 MG, BID, ORAL
     Route: 048
  2. ALINIA [Suspect]
     Indication: CRYPTOSPORIDIOSIS INFECTION
     Dosage: 500 MG, BID, ORAL
     Route: 048
     Dates: start: 20090824, end: 20090830
  3. CELLCEPT [Suspect]
     Indication: RENAL TRANSPLANT
     Dosage: 750 MG, BID, ORAL
     Route: 048

REACTIONS (11)
  - ANAEMIA [None]
  - BACTERIAL PYELONEPHRITIS [None]
  - CRYPTOSPORIDIOSIS INFECTION [None]
  - CYTOMEGALOVIRUS INFECTION [None]
  - DIARRHOEA [None]
  - DISEASE PROGRESSION [None]
  - DUODENAL ULCER [None]
  - GRAFT COMPLICATION [None]
  - OESOPHAGITIS ULCERATIVE [None]
  - OVERDOSE [None]
  - SEPSIS [None]
